FAERS Safety Report 15368057 (Version 1)
Quarter: 2018Q4

REPORT INFORMATION
  Report Type: Spontaneous
  Country: US (occurrence: US)
  Receive Date: 20180910
  Receipt Date: 20180910
  Transmission Date: 20190204
  Serious: No
  Sender: FDA-Public Use
  Company Number: US-SPROUT PHARMACEUTICALS, INC.-2018SP000211

PATIENT
  Sex: Female

DRUGS (1)
  1. ADDYI [Suspect]
     Active Substance: FLIBANSERIN
     Indication: LIBIDO DISORDER
     Route: 065

REACTIONS (4)
  - Depressed mood [Unknown]
  - Drug ineffective [Unknown]
  - Mood altered [Unknown]
  - Insomnia [Unknown]
